FAERS Safety Report 16949422 (Version 2)
Quarter: 2019Q4

REPORT INFORMATION
  Report Type: Spontaneous
  Country: IL (occurrence: IL)
  Receive Date: 20191023
  Receipt Date: 20191122
  Transmission Date: 20200122
  Serious: Yes (Hospitalization, Other)
  Sender: FDA-Public Use
  Company Number: IL-ALEXION PHARMACEUTICALS INC.-A201915140

PATIENT
  Age: 7 Week
  Sex: Male
  Weight: 4 kg

DRUGS (4)
  1. KANUMA [Suspect]
     Active Substance: SEBELIPASE ALFA
     Dosage: 10 MG
     Route: 065
     Dates: start: 20191011
  2. KANUMA [Suspect]
     Active Substance: SEBELIPASE ALFA
     Indication: LYSOSOMAL ACID LIPASE DEFICIENCY
     Dosage: 20 MG, UNK
     Route: 065
     Dates: start: 20190926
  3. DEXAMETHASONE. [Concomitant]
     Active Substance: DEXAMETHASONE
     Indication: HAEMOPHAGOCYTIC LYMPHOHISTIOCYTOSIS
     Dosage: UNK
     Route: 065
  4. KANUMA [Suspect]
     Active Substance: SEBELIPASE ALFA
     Dosage: 20 MG, 5MG/KG
     Route: 065
     Dates: start: 20190927

REACTIONS (2)
  - Staphylococcal sepsis [Unknown]
  - Pyrexia [Unknown]
